FAERS Safety Report 20820220 (Version 1)
Quarter: 2022Q2

REPORT INFORMATION
  Report Type: Spontaneous
  Country: US (occurrence: None)
  Receive Date: 20220511
  Receipt Date: 20220511
  Transmission Date: 20220720
  Serious: Yes (Life-Threatening, Hospitalization, Disabling, Other)
  Sender: FDA-Public Use
  Company Number: None

PATIENT
  Age: 50 Year
  Sex: Female
  Weight: 58.97 kg

DRUGS (6)
  1. LINZESS [Suspect]
     Active Substance: LINACLOTIDE
     Indication: Constipation
     Dates: start: 20211223
  2. HERBALS\TURMERIC [Concomitant]
     Active Substance: HERBALS\TURMERIC
  3. BERBERINE [Concomitant]
     Active Substance: BERBERINE
  4. SELENIUM [Concomitant]
     Active Substance: SELENIUM
  5. L - LYSINE [Concomitant]
  6. VITAMIN D [Concomitant]
     Active Substance: VITAMIN D NOS

REACTIONS (12)
  - Psychotic disorder [None]
  - Speech disorder [None]
  - Gait inability [None]
  - Diarrhoea [None]
  - Vomiting [None]
  - Blood potassium decreased [None]
  - Feeling hot [None]
  - Cognitive disorder [None]
  - COVID-19 [None]
  - Constipation [None]
  - Pain [None]
  - Illness [None]

NARRATIVE: CASE EVENT DATE: 20211224
